FAERS Safety Report 6745639-3 (Version None)
Quarter: 2010Q2

REPORT INFORMATION
  Report Type: 
  Country: None (occurrence: None)
  Receive Date: 20100528
  Receipt Date: 20100519
  Transmission Date: 20101027
  Serious: Yes (Hospitalization)
  Sender: FDA-Public Use
  Company Number: US-ABBOTT-10P-163-0646199-00

PATIENT
  Sex: Female

DRUGS (1)
  1. HUMIRA [Suspect]
     Indication: RHEUMATOID ARTHRITIS
     Dates: start: 20050101, end: 20100301

REACTIONS (11)
  - CELLULITIS [None]
  - DEHYDRATION [None]
  - INJECTION SITE ERYTHEMA [None]
  - OSTEOMYELITIS [None]
  - PAIN IN EXTREMITY [None]
  - PURULENT DISCHARGE [None]
  - PYREXIA [None]
  - RASH PUSTULAR [None]
  - SEPSIS [None]
  - VOMITING [None]
  - WOUND DRAINAGE [None]
